FAERS Safety Report 8266598-0 (Version None)
Quarter: 2012Q2

REPORT INFORMATION
  Report Type: 
  Country: None (occurrence: None)
  Receive Date: 20120406
  Receipt Date: 20120323
  Transmission Date: 20120825
  Serious: Yes (Death, Other)
  Sender: FDA-Public Use
  Company Number: US-BAXTER-2012BH003454

PATIENT
  Sex: Male
  Weight: 50 kg

DRUGS (1)
  1. HEMOFIL M [Suspect]
     Route: 042
     Dates: end: 20120118

REACTIONS (2)
  - DEATH [None]
  - GENERAL PHYSICAL HEALTH DETERIORATION [None]
